FAERS Safety Report 6294263-8 (Version None)
Quarter: 2009Q3

REPORT INFORMATION
  Report Type: 
  Country: None (occurrence: None)
  Receive Date: 20090803
  Receipt Date: 20090416
  Transmission Date: 20100115
  Serious: No
  Sender: FDA-Public Use
  Company Number: A0779116A

PATIENT
  Age: 42 Year
  Sex: Female

DRUGS (1)
  1. NICORETTE WHITE ICE OTC 4MG [Suspect]

REACTIONS (4)
  - INTENTIONAL DRUG MISUSE [None]
  - ORAL PAIN [None]
  - TONGUE HAEMORRHAGE [None]
  - TOOTHACHE [None]
